FAERS Safety Report 25887139 (Version 4)
Quarter: 2025Q4

REPORT INFORMATION
  Report Type: Spontaneous
  Country: US (occurrence: US)
  Receive Date: 20251006
  Receipt Date: 20251120
  Transmission Date: 20260117
  Serious: No
  Sender: VERTEX
  Company Number: US-VERTEX PHARMACEUTICALS-2025-016026

PATIENT
  Age: 80 Year
  Sex: Male

DRUGS (4)
  1. JOURNAVX [Suspect]
     Active Substance: SUZETRIGINE
     Indication: Pain
     Dosage: LOADING DOSE OF TWO 50 MG TABLETS (100 MG), THEN ONE 50 MG TABLET EVERY 12 HOURS
     Route: 048
     Dates: start: 20250918, end: 20250923
  2. CELEBREX [Concomitant]
     Active Substance: CELECOXIB
     Dosage: UNK
  3. HYDROCHLOROTHIAZIDE [Concomitant]
     Active Substance: HYDROCHLOROTHIAZIDE
     Dosage: 25 MG
  4. ELIQUIS [Concomitant]
     Active Substance: APIXABAN
     Dosage: UNK

REACTIONS (4)
  - Drug ineffective [Unknown]
  - Blood pressure increased [Unknown]
  - Heart rate increased [Unknown]
  - Insomnia [Unknown]

NARRATIVE: CASE EVENT DATE: 20250901
